FAERS Safety Report 13876303 (Version 1)
Quarter: 2017Q3

REPORT INFORMATION
  Report Type: Spontaneous
  Country: US (occurrence: None)
  Receive Date: 20170814
  Receipt Date: 20170814
  Transmission Date: 20171127
  Serious: No
  Sender: FDA-Public Use
  Company Number: None

PATIENT
  Age: 44 Year
  Sex: Male

DRUGS (1)
  1. INVANZ [Suspect]
     Active Substance: ERTAPENEM SODIUM
     Indication: CHOLANGITIS
     Route: 042
     Dates: start: 20170725, end: 20170801

REACTIONS (4)
  - Musculoskeletal pain [None]
  - Muscle spasms [None]
  - Back pain [None]
  - Condition aggravated [None]

NARRATIVE: CASE EVENT DATE: 20170801
